FAERS Safety Report 16935123 (Version 1)
Quarter: 2019Q4

REPORT INFORMATION
  Report Type: Spontaneous
  Country: US (occurrence: US)
  Receive Date: 20191018
  Receipt Date: 20191018
  Transmission Date: 20200122
  Serious: Yes (Other)
  Sender: FDA-Public Use
  Company Number: US-GLAXOSMITHKLINE-US2019186590

PATIENT
  Age: 73 Year
  Sex: Male

DRUGS (2)
  1. CITRUCEL [Suspect]
     Active Substance: METHYLCELLULOSE (4000 MPA.S)
     Indication: HAEMORRHOIDS
     Dosage: 1 TABLESPOON
     Route: 048
     Dates: start: 201910
  2. CITRUCEL [Suspect]
     Active Substance: METHYLCELLULOSE (4000 MPA.S)
     Indication: HAEMORRHOIDS
     Dosage: 1 TABLESPOON
     Route: 048
     Dates: start: 20191013

REACTIONS (4)
  - Insomnia [Unknown]
  - Product use in unapproved indication [Unknown]
  - Pruritus [Recovering/Resolving]
  - Adverse reaction [Unknown]
